FAERS Safety Report 12540662 (Version 2)
Quarter: 2016Q4

REPORT INFORMATION
  Report Type: Spontaneous
  Country: US (occurrence: US)
  Receive Date: 20160708
  Receipt Date: 20161011
  Transmission Date: 20170207
  Serious: No
  Sender: FDA-Public Use
  Company Number: US-TEVA-653062USA

PATIENT
  Age: 55 Year
  Sex: Male

DRUGS (1)
  1. ZECUITY [Suspect]
     Active Substance: SUMATRIPTAN SUCCINATE
     Route: 062
     Dates: start: 20160414, end: 20160414

REACTIONS (6)
  - Application site rash [Recovered/Resolved]
  - Incorrect drug administration duration [Unknown]
  - Application site pruritus [Unknown]
  - Application site swelling [Unknown]
  - Application site discolouration [Unknown]
  - Application site irritation [Unknown]

NARRATIVE: CASE EVENT DATE: 20160414
